FAERS Safety Report 7244160-6 (Version None)
Quarter: 2011Q1

REPORT INFORMATION
  Report Type: 
  Country: None (occurrence: None)
  Receive Date: 20110125
  Receipt Date: 20110121
  Transmission Date: 20110831
  Serious: Yes (Other)
  Sender: FDA-Public Use
  Company Number: US-PFIZER INC-2011006370

PATIENT
  Sex: Female
  Weight: 46.7 kg

DRUGS (3)
  1. LEXAPRO [Concomitant]
     Dosage: UNK
  2. SUTENT [Suspect]
     Indication: RENAL CELL CARCINOMA
     Dosage: 25 MG, 1X/DAY, X 7 DAYS EVERY 14 DAYS
     Route: 048
     Dates: start: 20100722
  3. TEGRETOL [Concomitant]
     Dosage: UNK

REACTIONS (1)
  - HAEMATURIA [None]
